FAERS Safety Report 9303245 (Version 1)
Quarter: 2013Q2

REPORT INFORMATION
  Report Type: Report from Study
  Country: US (occurrence: US)
  Receive Date: 20130522
  Receipt Date: 20130522
  Transmission Date: 20140414
  Serious: Yes (Hospitalization, Other)
  Sender: FDA-Public Use
  Company Number: US-ACTELION-A-NJ2011-46306

PATIENT
  Age: 57 Year
  Sex: Female

DRUGS (2)
  1. TRACLEER [Suspect]
     Indication: PULMONARY ARTERIAL HYPERTENSION
     Dosage: UNK
     Route: 048
     Dates: start: 20081125
  2. COUMADIN [Concomitant]

REACTIONS (8)
  - Mitral valve replacement [Recovered/Resolved]
  - Mitral valve stenosis [Unknown]
  - Coronary artery disease [Unknown]
  - Intracardiac thrombus [Unknown]
  - Right ventricular failure [Unknown]
  - Coagulation time prolonged [Unknown]
  - Fluid retention [Unknown]
  - Coagulation time abnormal [Unknown]
